FAERS Safety Report 5409294-7 (Version None)
Quarter: 2007Q3

REPORT INFORMATION
  Report Type: 
  Country: None (occurrence: None)
  Receive Date: 20070807
  Receipt Date: 20070807
  Transmission Date: 20080115
  Serious: Yes (Hospitalization)
  Sender: FDA-Public Use
  Company Number: None

PATIENT
  Sex: Female
  Weight: 60.4 kg

DRUGS (3)
  1. FLUDARABINE PHOSPHATE [Suspect]
     Indication: STEM CELL TRANSPLANT
     Dosage: 54MG DAILY IV DRIP
     Route: 041
     Dates: start: 20070419, end: 20070423
  2. CAMPATH [Suspect]
     Indication: STEM CELL TRANSPLANT
     Dosage: 20MG DAILY IV DRIP
     Route: 041
     Dates: start: 20070419, end: 20070423
  3. MELPHALAN [Suspect]
     Dosage: 250MG DAILY IV DRIP
     Route: 041
     Dates: start: 20070424, end: 20070424

REACTIONS (3)
  - HYPOTENSION [None]
  - ILL-DEFINED DISORDER [None]
  - PYREXIA [None]
